FAERS Safety Report 6667473-5 (Version None)
Quarter: 2010Q2

REPORT INFORMATION
  Report Type: 
  Country: None (occurrence: None)
  Receive Date: 20100405
  Receipt Date: 20100326
  Transmission Date: 20101027
  Serious: Yes (Hospitalization)
  Sender: FDA-Public Use
  Company Number: DE-ROCHE-693824

PATIENT
  Sex: Male
  Weight: 75 kg

DRUGS (3)
  1. PEGINTERFERON ALFA-2A [Suspect]
     Dosage: DOSE: 135 UNIT: 1, LAST DOSE PIOR TO SAE: 28 DECEMBER 2009
     Route: 058
     Dates: start: 20090901, end: 20100312
  2. BLINDED TENOFOVIR [Suspect]
     Dosage: DOSE BLINDED, FREQUENCY DAILY, LAST DOSE PIOR TO SAE: 28 DECEMBER 2009
     Route: 048
     Dates: start: 20090901, end: 20100312
  3. DOCITON [Concomitant]
     Dates: start: 20090901

REACTIONS (2)
  - ANAL ULCER [None]
  - GASTRITIS [None]
